FAERS Safety Report 5832104-0 (Version None)
Quarter: 2008Q3

REPORT INFORMATION
  Report Type: 
  Country: None (occurrence: None)
  Receive Date: 20080804
  Receipt Date: 20080724
  Transmission Date: 20090109
  Serious: Yes (Other)
  Sender: FDA-Public Use
  Company Number: US-JNJFOC-20080706393

PATIENT
  Sex: Female
  Weight: 84.37 kg

DRUGS (1)
  1. REMICADE [Suspect]
     Indication: CROHN'S DISEASE
     Dosage: 4 VIALS-PAST 5 YEARS

REACTIONS (3)
  - ASTHMA [None]
  - LUNG DISORDER [None]
  - PNEUMONIA [None]
